FAERS Safety Report 6569603-2 (Version None)
Quarter: 2010Q1

REPORT INFORMATION
  Report Type: 
  Country: None (occurrence: None)
  Receive Date: 20100203
  Receipt Date: 20100203
  Transmission Date: 20100710
  Serious: No
  Sender: FDA-Public Use
  Company Number: None

PATIENT
  Age: 32 Year
  Sex: Female
  Weight: 81.6475 kg

DRUGS (1)
  1. ZICAM NASAL GEL ZICAM LLC [Suspect]
     Indication: NASOPHARYNGITIS
     Dosage: 4 X DAILY, 4 DAYS NASAL
     Route: 045

REACTIONS (2)
  - HYPOGEUSIA [None]
  - HYPOSMIA [None]
